FAERS Safety Report 7677815-X (Version None)
Quarter: 2011Q3

REPORT INFORMATION
  Report Type: 
  Country: None (occurrence: None)
  Receive Date: 20110811
  Receipt Date: 20110801
  Transmission Date: 20111222
  Serious: Yes (Hospitalization)
  Sender: FDA-Public Use
  Company Number: US-JNJFOC-20110202162

PATIENT
  Sex: Female
  Weight: 45.7 kg

DRUGS (4)
  1. VANCOMYCIN [Concomitant]
  2. METHOTREXATE [Concomitant]
  3. REMICADE [Suspect]
     Indication: CROHN'S DISEASE
     Dosage: TOTAL 3 DOSES
     Route: 042
     Dates: start: 20091103, end: 20091214
  4. METRONIDAZOLE [Concomitant]

REACTIONS (2)
  - CROHN'S DISEASE [None]
  - PSEUDOMEMBRANOUS COLITIS [None]
